FAERS Safety Report 9016024 (Version 1)
Quarter: 2013Q1

REPORT INFORMATION
  Report Type: Spontaneous
  Country: US (occurrence: US)
  Receive Date: 20130116
  Receipt Date: 20130116
  Transmission Date: 20140127
  Serious: No
  Sender: FDA-Public Use
  Company Number: US-B.I. PHARMACEUTICALS,INC./RIDGEFIELD-2013-BI-01017BP

PATIENT
  Sex: Female
  Weight: 61 kg

DRUGS (2)
  1. PRADAXA [Suspect]
     Indication: ATRIAL FIBRILLATION
     Dosage: 300 MG
     Route: 048
     Dates: start: 201005, end: 201203
  2. PRADAXA [Suspect]
     Dosage: 150 MG
     Route: 048
     Dates: start: 201203

REACTIONS (6)
  - Cerebral haematoma [Recovered/Resolved]
  - Contusion [Recovered/Resolved]
  - Visual acuity reduced [Not Recovered/Not Resolved]
  - Capillary fragility [Not Recovered/Not Resolved]
  - Concussion [Recovered/Resolved]
  - Fall [Recovered/Resolved]
